FAERS Safety Report 25095273 (Version 1)
Quarter: 2025Q1

REPORT INFORMATION
  Report Type: Spontaneous
  Country: US (occurrence: US)
  Receive Date: 20250319
  Receipt Date: 20250319
  Transmission Date: 20250409
  Serious: No
  Sender: GALDERMA
  Company Number: US-GALDERMA-US2025003069

PATIENT

DRUGS (4)
  1. PROACTIV MD ADAPALENE ACNE TREATMENT [Suspect]
     Active Substance: ADAPALENE
     Indication: Acne cystic
     Route: 061
     Dates: start: 2024, end: 2024
  2. Proactiv MD Ultra Gentle Cleanser [Concomitant]
     Indication: Acne cystic
     Route: 061
     Dates: start: 2024, end: 2024
  3. COSMETICS [Concomitant]
     Active Substance: COSMETICS
     Indication: Acne cystic
     Route: 061
     Dates: start: 2024, end: 2024
  4. PROZAC [Concomitant]
     Active Substance: FLUOXETINE HYDROCHLORIDE
     Indication: Product used for unknown indication

REACTIONS (2)
  - Acne [Recovered/Resolved]
  - Pain of skin [Recovered/Resolved]

NARRATIVE: CASE EVENT DATE: 20240101
